FAERS Safety Report 20226396 (Version 2)
Quarter: 2022Q1

REPORT INFORMATION
  Report Type: Spontaneous
  Country: US (occurrence: US)
  Receive Date: 20211224
  Receipt Date: 20220305
  Transmission Date: 20220423
  Serious: No
  Sender: FDA-Public Use
  Company Number: US-BRISTOL-MYERS SQUIBB COMPANY-BMS-2021-139903

PATIENT
  Sex: Male
  Weight: 73.9 kg

DRUGS (8)
  1. OPDIVO [Suspect]
     Active Substance: NIVOLUMAB
     Indication: Product used for unknown indication
     Dosage: UNK
     Route: 065
  2. LENVIMA [Suspect]
     Active Substance: LENVATINIB
     Indication: Bone neoplasm
     Dosage: 12 MILLIGRAM, QD
     Route: 065
     Dates: start: 202110
  3. LENVIMA [Suspect]
     Active Substance: LENVATINIB
     Dosage: 12 MILLIGRAM, QD
     Route: 048
     Dates: start: 20210714
  4. ZOMETA [Concomitant]
     Active Substance: ZOLEDRONIC ACID
     Indication: Product used for unknown indication
     Dosage: UNK
     Route: 065
  5. LYRICA [Concomitant]
     Active Substance: PREGABALIN
     Indication: Product used for unknown indication
     Dosage: UNK
     Route: 065
  6. CELECOXIB [Concomitant]
     Active Substance: CELECOXIB
     Indication: Product used for unknown indication
     Dosage: UNK
     Route: 065
  7. VITAMIN D3 [Concomitant]
     Active Substance: CHOLECALCIFEROL
     Indication: Product used for unknown indication
     Dosage: 400 UNIT
     Route: 065
  8. CALCIUM [Concomitant]
     Active Substance: CALCIUM
     Indication: Product used for unknown indication
     Dosage: 500(1250)
     Route: 065

REACTIONS (5)
  - Contusion [Unknown]
  - Pyrexia [Recovered/Resolved]
  - Pain [Unknown]
  - Peripheral swelling [Unknown]
  - Pain in extremity [Unknown]
